FAERS Safety Report 9298549 (Version 3)
Quarter: 2013Q2

REPORT INFORMATION
  Report Type: Spontaneous
  Country: US (occurrence: US)
  Receive Date: 20130520
  Receipt Date: 20130626
  Transmission Date: 20140414
  Serious: No
  Sender: FDA-Public Use
  Company Number: US-ROXANE LABORATORIES, INC.-2013-RO-00736RO

PATIENT
  Sex: Female
  Weight: 55 kg

DRUGS (1)
  1. CODEINE SULFATE [Suspect]
     Dates: end: 1989

REACTIONS (2)
  - Drug ineffective [Unknown]
  - Product quality issue [Unknown]
